FAERS Safety Report 18187902 (Version 4)
Quarter: 2024Q1

REPORT INFORMATION
  Report Type: Spontaneous
  Country: US (occurrence: US)
  Receive Date: 20200824
  Receipt Date: 20240325
  Transmission Date: 20240410
  Serious: No
  Sender: FDA-Public Use
  Company Number: US-BIOGEN-2020BI00914738

PATIENT
  Age: 28 Year
  Sex: Male

DRUGS (1)
  1. TYSABRI [Suspect]
     Active Substance: NATALIZUMAB
     Indication: Multiple sclerosis
     Route: 050
     Dates: start: 20191122

REACTIONS (5)
  - Hypoacusis [Unknown]
  - Bladder pain [Unknown]
  - Nephrolithiasis [Unknown]
  - Kidney infection [Unknown]
  - Illness [Unknown]

NARRATIVE: CASE EVENT DATE: 20191201
